FAERS Safety Report 7181658-3 (Version None)
Quarter: 2010Q4

REPORT INFORMATION
  Report Type: 
  Country: None (occurrence: None)
  Receive Date: 20101221
  Receipt Date: 20100427
  Transmission Date: 20110411
  Serious: No
  Sender: FDA-Public Use
  Company Number: US-AMGEN-TCS405948

PATIENT

DRUGS (2)
  1. ENBREL [Suspect]
     Indication: RHEUMATOID ARTHRITIS
     Dosage: 50 MG, QWK
     Route: 058
     Dates: start: 20080608
  2. METHOTREXATE [Concomitant]

REACTIONS (9)
  - ALOPECIA [None]
  - ARTHRITIS [None]
  - CHEST PAIN [None]
  - HAEMATURIA [None]
  - JOINT INJURY [None]
  - MUSCULOSKELETAL PAIN [None]
  - NECK INJURY [None]
  - NECK PAIN [None]
  - ROAD TRAFFIC ACCIDENT [None]
